FAERS Safety Report 9177842 (Version 1)
Quarter: 2012Q4

REPORT INFORMATION
  Report Type: 
  Country: CL (occurrence: CL)
  Receive Date: 20121010
  Receipt Date: 20121010
  Transmission Date: 20130627
  Serious: Yes (Other)
  Sender: FDA-Public Use
  Company Number: CL-VERTEX PHARMACEUTICAL INC.-000000000000001357

PATIENT
  Sex: Male
  Weight: 99 kg

DRUGS (4)
  1. INCIVO [Suspect]
     Indication: HEPATITIS C
     Dosage: 750 mg, qd
     Route: 065
     Dates: start: 20120622
  2. INCIVO [Suspect]
     Dosage: 1125 mg, qd
     Dates: end: 20120720
  3. INTERFERON [Concomitant]
     Dosage: UNK
     Route: 065
  4. RIBAVIRINE [Concomitant]
     Dosage: UNK
     Route: 065

REACTIONS (1)
  - Overdose [Recovered/Resolved]
